FAERS Safety Report 10626603 (Version 2)
Quarter: 2015Q4

REPORT INFORMATION
  Report Type: Report from Study
  Country: ES (occurrence: ES)
  Receive Date: 20141204
  Receipt Date: 20151103
  Transmission Date: 20160304
  Serious: Yes (Hospitalization)
  Sender: FDA-Public Use
  Company Number: ES-AMGEN-ESPCT2014093382

PATIENT
  Age: 79 Year
  Sex: Male

DRUGS (2)
  1. PANITUMUMAB [Suspect]
     Active Substance: PANITUMUMAB
     Indication: PRODUCT USED FOR UNKNOWN INDICATION
     Dosage: 468 UNK, Q2WK
     Route: 042
     Dates: start: 20140724, end: 20141106
  2. PACLITAXEL. [Concomitant]
     Active Substance: PACLITAXEL
     Dosage: 158 UNK, QWK
     Route: 042
     Dates: start: 20140724, end: 20140919

REACTIONS (1)
  - Mucosal inflammation [Recovered/Resolved]

NARRATIVE: CASE EVENT DATE: 20141125
